FAERS Safety Report 5959520-0 (Version None)
Quarter: 2008Q4

REPORT INFORMATION
  Report Type: 
  Country: None (occurrence: None)
  Receive Date: 20081117
  Receipt Date: 20081106
  Transmission Date: 20090506
  Serious: Yes (Other)
  Sender: FDA-Public Use
  Company Number: GXKR2008NO10649

PATIENT
  Age: 43 Year
  Sex: Male

DRUGS (2)
  1. ATORVASTATIN CALCIUM [Suspect]
     Indication: HYPERLIPIDAEMIA
     Dosage: 10 MG, DAILY, 20 MG, DAILY, 40 MG, DAILY
  2. PRAVASTATIN [Suspect]
     Indication: HYPERLIPIDAEMIA

REACTIONS (5)
  - DIPLOPIA [None]
  - EYELID PTOSIS [None]
  - MYALGIA [None]
  - MYASTHENIA GRAVIS [None]
  - MYOCARDIAL INFARCTION [None]
